FAERS Safety Report 7078384-8 (Version None)
Quarter: 2010Q4

REPORT INFORMATION
  Report Type: 
  Country: None (occurrence: None)
  Receive Date: 20101101
  Receipt Date: 20101101
  Transmission Date: 20110411
  Serious: Yes (Other)
  Sender: FDA-Public Use
  Company Number: None

PATIENT
  Age: 50 Year
  Sex: Female
  Weight: 58.9676 kg

DRUGS (1)
  1. KENALOG [Suspect]
     Indication: BACK PAIN
     Dosage: N/A 2 EPIDURAL
     Route: 008

REACTIONS (5)
  - ASTHENIA [None]
  - DRUG TOXICITY [None]
  - HEADACHE [None]
  - INSOMNIA [None]
  - TREMOR [None]
